FAERS Safety Report 20444137 (Version 3)
Quarter: 2022Q4

REPORT INFORMATION
  Report Type: Spontaneous
  Country: US (occurrence: US)
  Receive Date: 20220208
  Receipt Date: 20221129
  Transmission Date: 20230112
  Serious: No
  Sender: FDA-Public Use
  Company Number: US-SA-SAC20220202001675

PATIENT
  Sex: Female

DRUGS (22)
  1. DUPIXENT [Suspect]
     Active Substance: DUPILUMAB
     Indication: Asthma
     Dosage: 300 MG, QOW
     Route: 058
     Dates: start: 20210420
  2. ADVAIR HFA [Concomitant]
     Active Substance: FLUTICASONE PROPIONATE\SALMETEROL XINAFOATE
  3. ALBUTEROL SULFATE [Concomitant]
     Active Substance: ALBUTEROL SULFATE
     Dosage: UNK
  4. ALBUTEROL SULFATE [Concomitant]
     Active Substance: ALBUTEROL SULFATE
     Dosage: UNK
  5. CUVITRU [Concomitant]
     Active Substance: HUMAN IMMUNOGLOBULIN G
     Dosage: UNK
  6. HYDROCHLOROTHIAZIDE [Concomitant]
     Active Substance: HYDROCHLOROTHIAZIDE
     Dosage: UNK
  7. FLUTICASONE [Concomitant]
     Active Substance: FLUTICASONE
     Dosage: UNK
  8. IBUPROFEN [Concomitant]
     Active Substance: IBUPROFEN
     Dosage: UNK
  9. METFORMIN [Concomitant]
     Active Substance: METFORMIN HYDROCHLORIDE
     Dosage: UNK
  10. OMEPRAZOLE [Concomitant]
     Active Substance: OMEPRAZOLE
     Dosage: UNK
  11. POTASSIUM CHLORIDE [Concomitant]
     Active Substance: POTASSIUM CHLORIDE
     Dosage: UNK
  12. RESTASIS [Concomitant]
     Active Substance: CYCLOSPORINE
     Dosage: UNK
  13. SIMVASTATIN [Concomitant]
     Active Substance: SIMVASTATIN
     Dosage: UNK
  14. SPIRIVA [Concomitant]
     Active Substance: TIOTROPIUM BROMIDE MONOHYDRATE
     Dosage: UNK
  15. PREDNISONE [Concomitant]
     Active Substance: PREDNISONE
     Dosage: UNK
  16. IRON [Concomitant]
     Active Substance: IRON
     Indication: Iron deficiency anaemia
     Dosage: UNK
  17. AZITHROMYCIN [Concomitant]
     Active Substance: AZITHROMYCIN
  18. EPINEPHRINE [Concomitant]
     Active Substance: EPINEPHRINE
  19. CODEINE PHOSPHATE\GUAIFENESIN [Concomitant]
     Active Substance: CODEINE PHOSPHATE\GUAIFENESIN
  20. KENALOG [Concomitant]
     Active Substance: TRIAMCINOLONE ACETONIDE
  21. LOTEPREDNOL [Concomitant]
     Active Substance: LOTEPREDNOL
  22. METHYLPREDNISOLONE SODIUM SUCCINATE [Concomitant]
     Active Substance: METHYLPREDNISOLONE SODIUM SUCCINATE

REACTIONS (2)
  - Impaired quality of life [Unknown]
  - Influenza [Unknown]
